FAERS Safety Report 18818237 (Version 2)
Quarter: 2021Q1

REPORT INFORMATION
  Report Type: Spontaneous
  Country: NL (occurrence: NL)
  Receive Date: 20210201
  Receipt Date: 20210318
  Transmission Date: 20210419
  Serious: Yes (Hospitalization, Other)
  Sender: FDA-Public Use
  Company Number: NVSC2021NL020634

PATIENT
  Sex: Female
  Weight: 74 kg

DRUGS (5)
  1. ENTRECTINIB [Suspect]
     Active Substance: ENTRECTINIB
     Indication: METASTASES TO LIVER
  2. LEVETIRACETAM. [Suspect]
     Active Substance: LEVETIRACETAM
     Indication: PRODUCT USED FOR UNKNOWN INDICATION
     Dosage: UNK
     Route: 065
  3. ENTRECTINIB [Suspect]
     Active Substance: ENTRECTINIB
     Indication: METASTASES TO LUNG
     Dosage: 600MG
     Route: 048
     Dates: start: 20201227, end: 20210105
  4. LEVETIRACETAM. [Suspect]
     Active Substance: LEVETIRACETAM
     Dosage: 500 MG,QD
     Route: 065
     Dates: start: 20201209
  5. ENTRECTINIB [Suspect]
     Active Substance: ENTRECTINIB
     Indication: METASTASES TO CENTRAL NERVOUS SYSTEM
     Dosage: UNK
     Route: 065
     Dates: start: 20201227

REACTIONS (3)
  - Off label use [Unknown]
  - Cancer pain [Unknown]
  - Pneumonitis [Unknown]

NARRATIVE: CASE EVENT DATE: 20201227
